FAERS Safety Report 14259985 (Version 1)
Quarter: 2017Q4

REPORT INFORMATION
  Report Type: Spontaneous
  Country: US (occurrence: US)
  Receive Date: 20171207
  Receipt Date: 20171207
  Transmission Date: 20180321
  Serious: No
  Sender: FDA-Public Use
  Company Number: US-VIFOR (INTERNATIONAL) INC.-VIT-2017-09432

PATIENT
  Sex: Female

DRUGS (12)
  1. NEPHROCAPS [Concomitant]
     Active Substance: ASCORBIC ACID\BIOTIN\CYANOCOBALAMIN\FOLIC ACID\NIACIN\PANTOTHENIC ACID\PYRIDOXINE\RIBOFLAVIN\THIAMINE
  2. TUMS [Concomitant]
     Active Substance: CALCIUM CARBONATE
  3. VELTASSA [Suspect]
     Active Substance: PATIROMER
     Indication: HYPERKALAEMIA
     Route: 048
     Dates: start: 20170617
  4. MIRALAX [Concomitant]
     Active Substance: POLYETHYLENE GLYCOL 3350
  5. ERGOCALCIFEROL. [Concomitant]
     Active Substance: ERGOCALCIFEROL
  6. TYLENOL [Concomitant]
     Active Substance: ACETAMINOPHEN
  7. FOSRENOL [Concomitant]
     Active Substance: LANTHANUM CARBONATE
  8. AMARYL [Concomitant]
     Active Substance: GLIMEPIRIDE
  9. RENVELA [Concomitant]
     Active Substance: SEVELAMER CARBONATE
  10. PREVACID [Concomitant]
     Active Substance: LANSOPRAZOLE
  11. MIDODRINE HYDROCHLORIDE. [Concomitant]
     Active Substance: MIDODRINE HYDROCHLORIDE
  12. PERI-COLACE [Concomitant]
     Active Substance: CASANTHRANOL\DOCUSATE SODIUM

REACTIONS (1)
  - Fatigue [Not Recovered/Not Resolved]
